FAERS Safety Report 18261281 (Version 2)
Quarter: 2020Q3

REPORT INFORMATION
  Report Type: Spontaneous
  Country: US (occurrence: US)
  Receive Date: 20200914
  Receipt Date: 20200929
  Transmission Date: 20201103
  Serious: No
  Sender: FDA-Public Use
  Company Number: US-ASTRAZENECA-2020SF15496

PATIENT
  Sex: Male
  Weight: 90.3 kg

DRUGS (3)
  1. BYDUREON [Suspect]
     Active Substance: EXENATIDE
     Indication: TYPE 2 DIABETES MELLITUS
     Route: 058
  2. LEVEMIR INSULIN LONG ACTING [Concomitant]
     Indication: DIABETES MELLITUS
     Dosage: 48 UNITS AT BREAKFAST AND 48 UNITS AFTER DINNER
  3. HUMALOG INSULIN SHORT ACTING [Concomitant]
     Indication: DIABETES MELLITUS
     Dosage: THREE TIMES A DAY BEFORE MEALS 12 UNITS BEFORE BREAKFAST, 8 UNITS BEFORE LUNCH AND 14 UNITS BEFOR...

REACTIONS (6)
  - Incorrect route of product administration [Unknown]
  - Wrong technique in device usage process [Unknown]
  - Needle issue [Unknown]
  - Intentional product misuse [Unknown]
  - Weight decreased [Unknown]
  - Injection site haemorrhage [Unknown]
